FAERS Safety Report 24403302 (Version 1)
Quarter: 2024Q4

REPORT INFORMATION
  Report Type: Spontaneous
  Country: EG (occurrence: EG)
  Receive Date: 20241007
  Receipt Date: 20241007
  Transmission Date: 20250115
  Serious: Yes (Hospitalization)
  Sender: ALKEM
  Company Number: EG-ALKEM LABORATORIES LIMITED-EG-ALKEM-2024-22069

PATIENT
  Age: 48 Year
  Sex: Female

DRUGS (3)
  1. PREGABALIN [Suspect]
     Active Substance: PREGABALIN
     Indication: Fibromyalgia
     Dosage: 75 MILLIGRAM, BID
     Route: 065
  2. PREGABALIN [Suspect]
     Active Substance: PREGABALIN
     Dosage: 150 MILLIGRAM, BID (DOSE INCREASED)
     Route: 065
  3. LOSARTAN [Concomitant]
     Active Substance: LOSARTAN
     Indication: Hypertension
     Dosage: 50 MILLIGRAM, OD
     Route: 065

REACTIONS (3)
  - Parkinsonism [Recovered/Resolved]
  - Toxicity to various agents [Unknown]
  - Intentional product use issue [Unknown]
